FAERS Safety Report 6037924-8 (Version None)
Quarter: 2009Q1

REPORT INFORMATION
  Report Type: 
  Country: None (occurrence: None)
  Receive Date: 20090113
  Receipt Date: 20090113
  Transmission Date: 20090719
  Serious: Yes (Hospitalization)
  Sender: FDA-Public Use
  Company Number: None

PATIENT
  Age: 63 Year
  Sex: Male
  Weight: 104.3273 kg

DRUGS (1)
  1. HEPARIN [Suspect]

REACTIONS (3)
  - CARDIAC FAILURE [None]
  - DRUG HYPERSENSITIVITY [None]
  - DYSPNOEA [None]
